FAERS Safety Report 25705733 (Version 2)
Quarter: 2025Q3

REPORT INFORMATION
  Report Type: Spontaneous
  Country: US (occurrence: US)
  Receive Date: 20250820
  Receipt Date: 20250925
  Transmission Date: 20251021
  Serious: Yes (Other)
  Sender: MERCK SHARP & DOHME LLC
  Company Number: US-009507513-2320178

PATIENT
  Age: 80 Year
  Sex: Female

DRUGS (1)
  1. KEYTRUDA [Suspect]
     Active Substance: PEMBROLIZUMAB
     Indication: Endometrial cancer metastatic
     Route: 042
     Dates: start: 20240123, end: 20240324

REACTIONS (4)
  - Malignant neoplasm progression [Unknown]
  - Pulmonary mass [Unknown]
  - Chemotherapy [Unknown]
  - Surgery [Unknown]

NARRATIVE: CASE EVENT DATE: 20240301
